FAERS Safety Report 7907718-4 (Version None)
Quarter: 2011Q4

REPORT INFORMATION
  Report Type: 
  Country: None (occurrence: None)
  Receive Date: 20111110
  Receipt Date: 20111028
  Transmission Date: 20120403
  Serious: Yes (Hospitalization)
  Sender: FDA-Public Use
  Company Number: US-ELI_LILLY_AND_COMPANY-US201111000470

PATIENT
  Age: 66 Year
  Sex: Male

DRUGS (3)
  1. CYMBALTA [Suspect]
     Indication: DEPRESSION
     Dosage: 30 MG, QD
  2. OMEPRAZOLE [Concomitant]
     Dosage: UNK
  3. ZOCOR [Concomitant]
     Dosage: UNK

REACTIONS (5)
  - RASH [None]
  - JOINT ARTHROPLASTY [None]
  - PRURITUS [None]
  - SLEEP DISORDER [None]
  - RASH ERYTHEMATOUS [None]
